FAERS Safety Report 13065500 (Version 3)
Quarter: 2017Q1

REPORT INFORMATION
  Report Type: Spontaneous
  Country: JP (occurrence: JP)
  Receive Date: 20161227
  Receipt Date: 20170301
  Transmission Date: 20170428
  Serious: Yes (Hospitalization)
  Sender: FDA-Public Use
  Company Number: JP-009507513-1612JPN009638

PATIENT
  Age: 73 Year
  Sex: Male

DRUGS (9)
  1. OPDIVO [Suspect]
     Active Substance: NIVOLUMAB
     Dosage: 3 MG/KG, QD
     Route: 041
     Dates: start: 20161005, end: 20161005
  2. OPDIVO [Suspect]
     Active Substance: NIVOLUMAB
     Dosage: 3 MG/KG, QD
     Route: 041
     Dates: start: 20160921, end: 20160921
  3. DIOVAN [Concomitant]
     Active Substance: VALSARTAN
  4. NERISONA [Concomitant]
     Active Substance: DIFLUCORTOLONE VALERATE
     Dosage: UNK
     Dates: start: 20161005
  5. OPDIVO [Suspect]
     Active Substance: NIVOLUMAB
     Indication: NON-SMALL CELL LUNG CANCER RECURRENT
     Dosage: 3 MG/KG, QD
     Route: 041
     Dates: start: 20160907, end: 20160907
  6. SPIRIVA [Concomitant]
     Active Substance: TIOTROPIUM BROMIDE MONOHYDRATE
  7. GLACTIV [Suspect]
     Active Substance: SITAGLIPTIN
     Indication: TYPE 2 DIABETES MELLITUS
     Dosage: 50 MG, ONCE A DAY
     Route: 048
  8. VOGLIBOSE TAKATA [Concomitant]
  9. BAYASPIRIN [Concomitant]
     Active Substance: ASPIRIN

REACTIONS (3)
  - Rash [Recovered/Resolved]
  - Eyelid ptosis [Recovering/Resolving]
  - Herpes zoster [Recovered/Resolved]

NARRATIVE: CASE EVENT DATE: 20160928
